FAERS Safety Report 5650531-1 (Version None)
Quarter: 2008Q1

REPORT INFORMATION
  Report Type: 
  Country: None (occurrence: None)
  Receive Date: 20080304
  Receipt Date: 20080304
  Transmission Date: 20080703
  Serious: Yes (Life-Threatening, Disabling)
  Sender: FDA-Public Use
  Company Number: None

PATIENT
  Age: 7 Year
  Sex: Male
  Weight: 19.0511 kg

DRUGS (1)
  1. ALBUTEROL [Suspect]
     Dosage: AS NEEDED

REACTIONS (1)
  - PHARMACEUTICAL PRODUCT COMPLAINT [None]
